FAERS Safety Report 13770787 (Version 1)
Quarter: 2017Q3

REPORT INFORMATION
  Report Type: Spontaneous
  Country: US (occurrence: US)
  Receive Date: 20170720
  Receipt Date: 20170720
  Transmission Date: 20171127
  Serious: No
  Sender: FDA-Public Use
  Company Number: None

PATIENT
  Age: 40 Year
  Sex: Female

DRUGS (1)
  1. DUPIXENT [Suspect]
     Active Substance: DUPILUMAB
     Indication: ECZEMA
     Route: 058
     Dates: start: 20170531

REACTIONS (6)
  - Alcohol use [None]
  - Oral herpes [None]
  - Erythema [None]
  - Facial pain [None]
  - Condition aggravated [None]
  - Feeling hot [None]

NARRATIVE: CASE EVENT DATE: 20170717
